FAERS Safety Report 5635052-4 (Version None)
Quarter: 2008Q1

REPORT INFORMATION
  Report Type: 
  Country: None (occurrence: None)
  Receive Date: 20080131
  Receipt Date: 20071112
  Transmission Date: 20080703
  Serious: No
  Sender: FDA-Public Use
  Company Number: 163-21880-07110665

PATIENT
  Age: 55 Year
  Sex: Male

DRUGS (5)
  1. REVLIMID [Suspect]
     Indication: AMYLOIDOSIS
     Dosage: 15 MG, DAILY FOR 21 DAYS, ORAL
     Route: 048
     Dates: start: 20071013
  2. LASIX [Concomitant]
  3. SPIRONOLACTONE [Concomitant]
  4. WARFARIN SODIUM [Concomitant]
  5. ZOCOR [Concomitant]

REACTIONS (1)
  - DYSPNOEA [None]
